APPROVED DRUG PRODUCT: BROMOCRIPTINE MESYLATE
Active Ingredient: BROMOCRIPTINE MESYLATE
Strength: EQ 2.5MG BASE
Dosage Form/Route: TABLET;ORAL
Application: A077646 | Product #001 | TE Code: AB
Applicant: PADAGIS US LLC
Approved: Oct 1, 2008 | RLD: No | RS: Yes | Type: RX